FAERS Safety Report 20212225 (Version 1)
Quarter: 2021Q4

REPORT INFORMATION
  Report Type: Report from Study
  Country: ES (occurrence: ES)
  Receive Date: 20211221
  Receipt Date: 20211221
  Transmission Date: 20220303
  Serious: Yes (Other)
  Sender: FDA-Public Use
  Company Number: ES-VELOXIS PHARMACEUTICALS-2020VELES-000743

PATIENT
  Age: 71 Year
  Sex: Male
  Weight: 83 kg

DRUGS (22)
  1. MYCOPHENOLATE MOFETIL [Suspect]
     Active Substance: MYCOPHENOLATE MOFETIL
     Indication: Product used for unknown indication
     Dosage: 2000 MILLIGRAM, QD
     Dates: start: 20190626
  2. MYCOPHENOLATE MOFETIL [Suspect]
     Active Substance: MYCOPHENOLATE MOFETIL
     Indication: Immunosuppression
     Dosage: 1000 MILLIGRAM, QD
     Dates: start: 20190826
  3. TACROLIMUS [Suspect]
     Active Substance: TACROLIMUS
     Indication: Renal transplant
     Dosage: 12 MILLIGRAM, QD
     Route: 048
     Dates: start: 20190705, end: 20190708
  4. TACROLIMUS [Suspect]
     Active Substance: TACROLIMUS
     Dosage: 3 MILLIGRAM, QD
     Route: 048
     Dates: start: 20190826
  5. TACROLIMUS [Suspect]
     Active Substance: TACROLIMUS
     Dosage: 6.5 MILLIGRAM, QD
     Route: 048
     Dates: start: 20200630
  6. TACROLIMUS [Suspect]
     Active Substance: TACROLIMUS
     Dosage: 2.75 MILLIGRAM, QD
     Route: 048
     Dates: start: 20190907, end: 20190918
  7. TACROLIMUS [Suspect]
     Active Substance: TACROLIMUS
     Dosage: 3.5 MILLIGRAM, QD
     Route: 048
     Dates: start: 20190823, end: 20190823
  8. TACROLIMUS [Suspect]
     Active Substance: TACROLIMUS
     Dosage: 2 MILLIGRAM, QD
     Route: 048
     Dates: start: 20190923
  9. TACROLIMUS [Suspect]
     Active Substance: TACROLIMUS
     Dosage: 8.5 MILLIGRAM, QD
     Route: 048
     Dates: start: 20190718
  10. TACROLIMUS [Suspect]
     Active Substance: TACROLIMUS
     Dosage: 1.5 MILLIGRAM, QD
     Route: 048
     Dates: start: 20191227
  11. TACROLIMUS [Suspect]
     Active Substance: TACROLIMUS
     Indication: Renal transplant
     Dosage: 15.5 MILLIGRAM, QD, START DATE: 26-JUN-2019
     Dates: end: 20190706
  12. EVEROLIMUS [Suspect]
     Active Substance: EVEROLIMUS
     Indication: Immunosuppression
     Dosage: 2.5 MILLIGRAM, QD, START DATE: 23-OCT-2019
  13. THYMOGLOBULIN [Suspect]
     Active Substance: LAPINE T-LYMPHOCYTE IMMUNE GLOBULIN
     Indication: Immunosuppression
     Dosage: 329 MILLIGRAM, QD, START DATE: 26-JUL-2019
     Dates: end: 20190627
  14. THYMOGLOBULIN [Suspect]
     Active Substance: LAPINE T-LYMPHOCYTE IMMUNE GLOBULIN
     Dosage: 2020 MILLIGRAM, QD
     Dates: start: 2020, end: 2020
  15. TAMSULOSIN [Suspect]
     Active Substance: TAMSULOSIN
     Indication: Hypertension
     Dosage: UNK, START DATE: 08-JUL-2019
  16. VALGANCICLOVIR [Concomitant]
     Active Substance: VALGANCICLOVIR
     Dosage: UNK, START DATE: 26-JUN-2019
     Dates: end: 20190923
  17. VALGANCICLOVIR [Concomitant]
     Active Substance: VALGANCICLOVIR
     Dosage: UNK, START DATE: 26-JUN-2019 00:00
  18. SULFAMETHOXAZOLE\TRIMETHOPRIM [Concomitant]
     Active Substance: SULFAMETHOXAZOLE\TRIMETHOPRIM
     Dosage: UNK, START DATE: 26-JUN-2019
     Dates: end: 20190923
  19. BISOPROLOL [Concomitant]
     Active Substance: BISOPROLOL
     Indication: Sinus tachycardia
     Dosage: UNK, START DATE: 08-JUL-2019
  20. AMLODIPINE GT [Concomitant]
     Indication: Hypertension
     Dosage: UNK, START DATE: 08-JUL-2019
  21. PARACALCITOLO ACCORD [Concomitant]
     Indication: Hyperparathyroidism
     Dosage: UNK, START DATE: 08-JUL-2019
  22. SULFAMETHOXAZOLE [Concomitant]
     Active Substance: SULFAMETHOXAZOLE
     Dosage: UNK

REACTIONS (4)
  - Polyomavirus viraemia [Recovered/Resolved with Sequelae]
  - Tremor [Recovering/Resolving]
  - Product use in unapproved indication [Unknown]
  - Off label use [Unknown]

NARRATIVE: CASE EVENT DATE: 20190705
